FAERS Safety Report 12937775 (Version 3)
Quarter: 2016Q4

REPORT INFORMATION
  Report Type: Report from Study
  Country: None (occurrence: CA)
  Receive Date: 20161114
  Receipt Date: 20161209
  Transmission Date: 20170207
  Serious: Yes (Death)
  Sender: FDA-Public Use
  Company Number: CA-ABBVIE-16K-028-1780057-00

PATIENT
  Age: 40 Year
  Sex: Female
  Weight: 80 kg

DRUGS (4)
  1. HUMIRA [Suspect]
     Active Substance: ADALIMUMAB
     Indication: PSORIATIC ARTHROPATHY
  2. METHOTREXATE. [Concomitant]
     Active Substance: METHOTREXATE
     Indication: PRODUCT USED FOR UNKNOWN INDICATION
     Dates: start: 200701, end: 201608
  3. HUMIRA [Suspect]
     Active Substance: ADALIMUMAB
     Indication: PSORIASIS
     Route: 058
     Dates: start: 20150109
  4. SORIATANE [Concomitant]
     Active Substance: ACITRETIN
     Indication: PRODUCT USED FOR UNKNOWN INDICATION
     Dates: start: 200110, end: 200704

REACTIONS (6)
  - Red cell distribution width increased [Unknown]
  - Aneurysm ruptured [Fatal]
  - C-reactive protein increased [Unknown]
  - Mean cell haemoglobin decreased [Unknown]
  - Haemoglobin decreased [Unknown]
  - Red blood cell sedimentation rate increased [Unknown]

NARRATIVE: CASE EVENT DATE: 20160305
